FAERS Safety Report 5242423-7 (Version None)
Quarter: 2007Q1

REPORT INFORMATION
  Report Type: 
  Country: None (occurrence: None)
  Receive Date: 20070221
  Receipt Date: 20070213
  Transmission Date: 20070707
  Serious: Yes (Hospitalization)
  Sender: FDA-Public Use
  Company Number: JP-JNJFOC-20051202249

PATIENT
  Age: 81 Year
  Sex: Female

DRUGS (14)
  1. TAVANIC [Suspect]
     Indication: BACTERIAL INFECTION
     Route: 048
     Dates: start: 20041127, end: 20041207
  2. UNACID [Suspect]
     Indication: BACTERIAL INFECTION
     Route: 048
     Dates: start: 20041127, end: 20041207
  3. LEVOTHYROXINE SODIUM [Concomitant]
     Indication: HYPOTHYROIDISM
     Route: 048
  4. POTASSIUM CHLORIDE [Concomitant]
     Indication: DIARRHOEA
     Route: 048
     Dates: start: 20041201, end: 20050107
  5. TORSEMIDE [Concomitant]
     Indication: CARDIAC FAILURE
     Route: 048
     Dates: start: 20041201
  6. ASPIRIN [Concomitant]
     Indication: CORONARY ARTERY DISEASE
     Route: 048
     Dates: start: 20041201
  7. LANITOP [Concomitant]
     Indication: CARDIAC FAILURE
     Route: 048
     Dates: start: 20041201
  8. CARBIMAZOL [Concomitant]
     Indication: HYPERTHYROIDISM
     Route: 048
  9. ISOPTIN [Concomitant]
     Indication: TACHYCARDIA
     Route: 065
     Dates: start: 20041128
  10. PANTOZOL [Concomitant]
     Indication: GASTROINTESTINAL DISORDER THERAPY
     Dates: start: 20041128
  11. OXIS [Concomitant]
     Indication: CARDIAC FAILURE
     Route: 055
     Dates: start: 20041125
  12. SPIRIVA [Concomitant]
     Indication: OBSTRUCTIVE AIRWAYS DISORDER
     Route: 055
     Dates: start: 20041129
  13. BETAMANN [Concomitant]
     Indication: GLAUCOMA
     Route: 047
     Dates: start: 20041201
  14. PERENTEROL [Concomitant]
     Indication: GASTROENTERITIS
     Route: 048
     Dates: start: 20041213, end: 20050107

REACTIONS (1)
  - GASTROENTERITIS CLOSTRIDIAL [None]
